FAERS Safety Report 24534446 (Version 1)
Quarter: 2024Q4

REPORT INFORMATION
  Report Type: Spontaneous
  Country: US (occurrence: None)
  Receive Date: 20241021
  Receipt Date: 20241021
  Transmission Date: 20250115
  Serious: Yes (Hospitalization)
  Sender: Public
  Company Number: None

PATIENT
  Age: 29 Day
  Sex: Male
  Weight: 3.34 kg

DRUGS (1)
  1. BEYFORTUS [Suspect]
     Active Substance: NIRSEVIMAB-ALIP

REACTIONS (7)
  - Jaundice [None]
  - Jaundice [None]
  - Blood bilirubin increased [None]
  - Haemoglobin decreased [None]
  - Haematocrit decreased [None]
  - Blood lactate dehydrogenase increased [None]
  - Reticulocyte count increased [None]

NARRATIVE: CASE EVENT DATE: 20241015
